FAERS Safety Report 7203966-X (Version None)
Quarter: 2010Q4

REPORT INFORMATION
  Report Type: 
  Country: None (occurrence: None)
  Receive Date: 20101220
  Receipt Date: 20101203
  Transmission Date: 20110411
  Serious: Yes (Death, Hospitalization)
  Sender: FDA-Public Use
  Company Number: 10-541

PATIENT
  Age: 19 Year
  Sex: Male

DRUGS (6)
  1. IBUPROFEN [Suspect]
     Dosage: ORAL
     Route: 048
     Dates: start: 19830101
  2. CYCLOBENZAPRINE [Suspect]
     Dosage: ORAL
     Route: 048
     Dates: start: 19830101
  3. PHENYLPROPANOLAMINE HCL [Suspect]
     Dosage: ORAL
     Route: 048
     Dates: start: 19830101
  4. CHLORPHENIRAMINE MALEATE [Suspect]
     Dosage: ORAL
     Route: 048
     Dates: start: 19830101
  5. PHENYTOIN [Suspect]
     Dosage: ORAL
     Route: 048
     Dates: start: 19830101
  6. LIDOCAINE [Suspect]
     Dosage: ORAL
     Route: 048
     Dates: start: 19830101

REACTIONS (3)
  - METABOLIC ACIDOSIS [None]
  - MULTIPLE DRUG OVERDOSE [None]
  - TACHYCARDIA [None]
